FAERS Safety Report 15537271 (Version 3)
Quarter: 2020Q2

REPORT INFORMATION
  Report Type: Spontaneous
  Country: US (occurrence: US)
  Receive Date: 20181022
  Receipt Date: 20200422
  Transmission Date: 20200713
  Serious: No
  Sender: FDA-Public Use
  Company Number: US-PFIZER INC-2018428438

PATIENT
  Age: 75 Year
  Sex: Female

DRUGS (2)
  1. XELJANZ [Suspect]
     Active Substance: TOFACITINIB CITRATE
     Indication: ARTHRITIS
     Dosage: 5 MG, UNK
  2. ZITHROMAX [Concomitant]
     Active Substance: AZITHROMYCIN DIHYDRATE
     Dosage: UNK

REACTIONS (11)
  - Hypertension [Unknown]
  - Laryngitis [Unknown]
  - Joint swelling [Not Recovered/Not Resolved]
  - Dyspnoea [Unknown]
  - Rales [Unknown]
  - Upper respiratory tract infection [Unknown]
  - Tenderness [Unknown]
  - Headache [Unknown]
  - Disturbance in attention [Unknown]
  - Dyspnoea exertional [Unknown]
  - Rash [Unknown]
